FAERS Safety Report 8385849-5 (Version None)
Quarter: 2012Q2

REPORT INFORMATION
  Report Type: 
  Country: None (occurrence: None)
  Receive Date: 20120523
  Receipt Date: 20120508
  Transmission Date: 20120825
  Serious: Yes (Hospitalization)
  Sender: FDA-Public Use
  Company Number: 2012SGN00204

PATIENT
  Age: 28 Year
  Sex: Female

DRUGS (4)
  1. BRENTUXIMAB VEDOTIN (BRENTUXIMAB VEDOTIN) INJECTION [Suspect]
     Indication: HODGKIN'S DISEASE
     Dosage: INTRAVENOUS, INTRAVENOUS
     Route: 042
     Dates: start: 20120228, end: 20120421
  2. ETOPOSIDE [Concomitant]
  3. CARBOPLATIN [Concomitant]
  4. IFOSFAMIDE [Concomitant]

REACTIONS (6)
  - HYPOTENSION [None]
  - VOMITING [None]
  - DIARRHOEA [None]
  - NAUSEA [None]
  - PYREXIA [None]
  - SINUS TACHYCARDIA [None]
